FAERS Safety Report 19810136 (Version 5)
Quarter: 2022Q3

REPORT INFORMATION
  Report Type: Report from Study
  Country: BE (occurrence: BE)
  Receive Date: 20210908
  Receipt Date: 20220810
  Transmission Date: 20221027
  Serious: Yes (Hospitalization, Other)
  Sender: FDA-Public Use
  Company Number: BE-BAXTER-2021BAX028091

PATIENT
  Age: 73 Year
  Sex: Female
  Weight: 95 kg

DRUGS (7)
  1. DOXORUBICIN HYDROCHLORIDE [Suspect]
     Active Substance: DOXORUBICIN HYDROCHLORIDE
     Indication: Product used for unknown indication
     Dosage: 8.5714 MG (60 MG,1 IN 1 WK), ROUTE: INTRAVENOUS (NOT OTHERWISE SPECIFIED)
     Route: 042
     Dates: start: 20210113, end: 20210113
  2. VELCADE [Suspect]
     Active Substance: BORTEZOMIB
     Indication: Plasma cell myeloma
     Dosage: 0.3614 MG (2.53 MG,1 IN 1 WK)
     Route: 042
     Dates: start: 20210113, end: 20210113
  3. RIVAROXABAN [Concomitant]
     Active Substance: RIVAROXABAN
     Indication: Pulmonary embolism
     Dosage: 20 CAPSULES DAILY, PM
     Route: 048
     Dates: start: 20200208, end: 20210127
  4. RIVAROXABAN [Concomitant]
     Active Substance: RIVAROXABAN
     Dosage: UNK
     Route: 065
     Dates: start: 202102
  5. TAZOBACTAM [Concomitant]
     Active Substance: TAZOBACTAM
     Indication: Tumour associated fever
     Dosage: UNK, PM
     Route: 065
     Dates: start: 20210127, end: 202102
  6. NADROPARIN [Concomitant]
     Active Substance: NADROPARIN
     Indication: Pulmonary embolism
     Dosage: 1 MILLIGRAM,PRN
     Route: 058
     Dates: start: 20210128, end: 202102
  7. CIPROFLOXACIN [Concomitant]
     Active Substance: CIPROFLOXACIN
     Indication: Urinary tract infection
     Dosage: UNK, PM
     Route: 048
     Dates: start: 202101, end: 202101

REACTIONS (3)
  - Tumour associated fever [Recovered/Resolved]
  - Disease progression [Recovering/Resolving]
  - Neutropenia [Recovered/Resolved]

NARRATIVE: CASE EVENT DATE: 20210101
